FAERS Safety Report 16341679 (Version 1)
Quarter: 2019Q2

REPORT INFORMATION
  Report Type: Spontaneous
  Country: US (occurrence: US)
  Receive Date: 20190416
  Receipt Date: 20190416
  Transmission Date: 20190711
  Serious: No
  Sender: FDA-Public Use
  Company Number: None

PATIENT
  Age: 46 Year
  Sex: Male
  Weight: 92.99 kg

DRUGS (1)
  1. TALTZ [Suspect]
     Active Substance: IXEKIZUMAB
     Indication: PSORIATIC ARTHROPATHY
     Dosage: INJECT 80MG (1 PEN) SUBCUTANEOUSLY  EVERY 2 WEEKS  AT WEEKS 4-12 AS DIRECTED?
     Route: 058
     Dates: start: 201903

REACTIONS (1)
  - Paraesthesia [None]
